FAERS Safety Report 8310828-3 (Version None)
Quarter: 2012Q2

REPORT INFORMATION
  Report Type: 
  Country: None (occurrence: None)
  Receive Date: 20120425
  Receipt Date: 20120315
  Transmission Date: 20120825
  Serious: Yes (Hospitalization)
  Sender: FDA-Public Use
  Company Number: PHEH2012US008545

PATIENT
  Sex: Female

DRUGS (1)
  1. RECLAST [Suspect]
     Dosage: UNK
     Route: 042
     Dates: start: 20110101

REACTIONS (4)
  - ARTHRALGIA [None]
  - RASH [None]
  - MYALGIA [None]
  - DERMATOMYOSITIS [None]
